FAERS Safety Report 24401029 (Version 1)
Quarter: 2024Q4

REPORT INFORMATION
  Report Type: Spontaneous
  Country: US (occurrence: None)
  Receive Date: 20241006
  Receipt Date: 20241006
  Transmission Date: 20250114
  Serious: Yes (Hospitalization, Other)
  Sender: MAIA PHARMACEUTICALS
  Company Number: US-MAIA Pharmaceuticals, Inc.-MAI202409-000056

PATIENT
  Age: 45 Year
  Sex: Male

DRUGS (2)
  1. BACLOFEN [Suspect]
     Active Substance: BACLOFEN
     Indication: Muscle spasticity
     Dosage: UNKNOWN
     Route: 037
  2. BACLOFEN [Suspect]
     Active Substance: BACLOFEN
     Dosage: UNKNOWN
     Route: 048

REACTIONS (7)
  - Cardiac arrest [Recovered/Resolved]
  - Tachypnoea [Unknown]
  - Mental status changes [Unknown]
  - Electrocardiogram QT prolonged [Recovered/Resolved]
  - Hypertension [Recovered/Resolved]
  - Tachycardia [Recovered/Resolved]
  - Overdose [Unknown]
